FAERS Safety Report 10132519 (Version 1)
Quarter: 2014Q2

REPORT INFORMATION
  Report Type: Spontaneous
  Country: US (occurrence: US)
  Receive Date: 20140428
  Receipt Date: 20140428
  Transmission Date: 20141212
  Serious: Yes (Disabling)
  Sender: FDA-Public Use
  Company Number: US-SA-2014SA051895

PATIENT
  Age: 53 Year
  Sex: Female

DRUGS (1)
  1. LANTUS [Suspect]
     Indication: DIABETES MELLITUS
     Dosage: LANTUS STARTED ABOUT 8 YEARS AGO TAKES 24 U DAILY AT BEDTIME DOSE:24 UNIT(S)
     Route: 065

REACTIONS (1)
  - Spinal osteoarthritis [Not Recovered/Not Resolved]
